FAERS Safety Report 12880709 (Version 1)
Quarter: 2016Q4

REPORT INFORMATION
  Report Type: Spontaneous
  Country: US (occurrence: US)
  Receive Date: 20161025
  Receipt Date: 20161025
  Transmission Date: 20170207
  Serious: Yes (Other)
  Sender: FDA-Public Use
  Company Number: US-GLAXOSMITHKLINE-US2016GSK156499

PATIENT
  Age: 31 Year
  Sex: Female
  Weight: 77.98 kg

DRUGS (3)
  1. WELLBUTRIN XL [Suspect]
     Active Substance: BUPROPION HYDROCHLORIDE
     Indication: ANXIETY
  2. LIOTHYRONINE [Concomitant]
     Active Substance: LIOTHYRONINE
  3. WELLBUTRIN XL [Suspect]
     Active Substance: BUPROPION HYDROCHLORIDE
     Indication: DEPRESSION
     Dosage: 450 MG, 1D
     Route: 048
     Dates: start: 2015

REACTIONS (6)
  - Pain [Unknown]
  - Inappropriate schedule of drug administration [Not Recovered/Not Resolved]
  - Extra dose administered [Not Recovered/Not Resolved]
  - Vaginal haemorrhage [Unknown]
  - Abortion spontaneous [Unknown]
  - Exposure during pregnancy [Unknown]

NARRATIVE: CASE EVENT DATE: 201603
